FAERS Safety Report 7668270-4 (Version None)
Quarter: 2011Q3

REPORT INFORMATION
  Report Type: 
  Country: None (occurrence: None)
  Receive Date: 20110808
  Receipt Date: 20110801
  Transmission Date: 20111222
  Serious: Yes (Other)
  Sender: FDA-Public Use
  Company Number: FR-BAYER-2011-067885

PATIENT
  Age: 50 Year
  Sex: Female

DRUGS (16)
  1. CELLCEPT [Suspect]
     Route: 048
  2. FLUCONAZOLE [Concomitant]
     Dosage: 1 DF, QD
     Route: 048
     Dates: start: 20110609
  3. HEPARIN [Concomitant]
     Dosage: 15000 IU, QD
     Route: 042
     Dates: start: 20110608
  4. VANCOMYCIN [Concomitant]
     Dosage: 1 G, QD
     Route: 042
     Dates: start: 20110608, end: 20110625
  5. PRIMPERAN TAB [Suspect]
     Dosage: 1 DF, TID
     Route: 042
     Dates: start: 20110608
  6. RAMIPRIL [Concomitant]
     Dosage: 1 DF, QD
     Route: 048
  7. OMEPRAZOLE [Concomitant]
     Dosage: 20 MG, QD
     Route: 042
     Dates: start: 20110608
  8. GELOX [Concomitant]
     Dosage: 1 DF, TID
     Route: 048
     Dates: start: 20110608
  9. CELLCEPT [Suspect]
     Indication: STEM CELL TRANSPLANT
     Dosage: DAILY DOSE 4 DF
     Route: 042
     Dates: start: 20110612
  10. ONDANSERTRON HYDROCHLORIDE [Suspect]
     Dosage: 1 DF, BID
     Route: 042
     Dates: start: 20110608
  11. CYCLOSPORINE [Suspect]
     Indication: STEM CELL TRANSPLANT
     Dosage: 200 MG, QD
     Route: 042
     Dates: start: 20110612
  12. TRANXENE [Concomitant]
     Dosage: DAILY DOSE 20 MG
     Route: 042
     Dates: start: 20110608
  13. MYCOSTATIN [Concomitant]
     Dosage: 1 DF, BID
     Route: 048
     Dates: start: 20110609
  14. CIPROFLOXACIN [Suspect]
     Indication: INFECTION PROPHYLAXIS
     Dosage: 1 DF, BID
     Route: 042
     Dates: start: 20110608, end: 20110627
  15. ZOVIRAX [Suspect]
     Indication: INFECTION PROPHYLAXIS
     Dosage: 1 DF, TID
     Route: 042
     Dates: start: 20110608
  16. CEFTAZIDIME SODIUM [Suspect]
     Indication: INFECTION PROPHYLAXIS
     Dosage: 1 DF, TID
     Route: 042
     Dates: start: 20110608

REACTIONS (10)
  - BRUXISM [None]
  - TONGUE BITING [None]
  - FEELING HOT [None]
  - DISCOMFORT [None]
  - AMNESIA [None]
  - EPILEPSY [None]
  - HYPERTONIA [None]
  - URINARY INCONTINENCE [None]
  - SYNCOPE [None]
  - BRADYCARDIA [None]
